FAERS Safety Report 9657649 (Version 1)
Quarter: 2013Q4

REPORT INFORMATION
  Report Type: Spontaneous
  Country: US (occurrence: US)
  Receive Date: 20131030
  Receipt Date: 20131030
  Transmission Date: 20140711
  Serious: No
  Sender: FDA-Public Use
  Company Number: US-ENDO PHARMACEUTICALS INC.-HCDA20110041

PATIENT
  Age: 61 Year
  Sex: Female

DRUGS (2)
  1. HYDROCODONE/ACETAMINOPHEN 10MG/325MG [Suspect]
     Indication: ARTHRALGIA
     Dosage: 5/162.5 MG
     Route: 048
     Dates: start: 20110724
  2. IBUPROFEN [Concomitant]
     Indication: ARTHRALGIA
     Route: 048

REACTIONS (1)
  - Skin burning sensation [Not Recovered/Not Resolved]
